FAERS Safety Report 21082743 (Version 1)
Quarter: 2022Q3

REPORT INFORMATION
  Report Type: Spontaneous
  Country: US (occurrence: None)
  Receive Date: 20220714
  Receipt Date: 20220714
  Transmission Date: 20221026
  Serious: Yes (Hospitalization)
  Sender: FDA-Public Use
  Company Number: None

PATIENT
  Age: 92 Year
  Sex: Male

DRUGS (1)
  1. CARVEDILOL [Suspect]
     Active Substance: CARVEDILOL
     Indication: Hypertension
     Dosage: 6.25 MG BID PO?
     Route: 048
     Dates: start: 20210524, end: 20220624

REACTIONS (5)
  - Acute kidney injury [None]
  - Hyponatraemia [None]
  - Hyperkalaemia [None]
  - Sinus bradycardia [None]
  - Mental status changes [None]

NARRATIVE: CASE EVENT DATE: 20220622
